FAERS Safety Report 10179421 (Version 1)
Quarter: 2014Q2

REPORT INFORMATION
  Report Type: Spontaneous
  Country: US (occurrence: None)
  Receive Date: 20140515
  Receipt Date: 20140515
  Transmission Date: 20141212
  Serious: Yes (Hospitalization)
  Sender: FDA-Public Use
  Company Number: UTC-048529

PATIENT
  Age: 49 Year
  Sex: Female
  Weight: 96.2 kg

DRUGS (3)
  1. TYVASO (0.6 MICROGRAM AEROSOL FOR INHALATION) (TREPOSTINIL SODIUM) [Suspect]
     Indication: PULMONARY ARTERIAL HYPERTENSION
     Route: 055
     Dates: start: 20100812, end: 2014
  2. REVATIO (SILDENAFIL CITRATE) [Concomitant]
  3. TRACLEER (BOSENTAN) [Concomitant]

REACTIONS (2)
  - Sepsis [None]
  - Nausea [None]
